FAERS Safety Report 11721455 (Version 1)
Quarter: 2015Q4

REPORT INFORMATION
  Report Type: Spontaneous
  Country: US (occurrence: None)
  Receive Date: 20151109
  Receipt Date: 20151109
  Transmission Date: 20160304
  Serious: Yes (Hospitalization, Other)
  Sender: FDA-Public Use
  Company Number: US2015K6808LIT

PATIENT
  Age: 44 Year
  Sex: Male

DRUGS (7)
  1. PREDNISONE. [Concomitant]
     Active Substance: PREDNISONE
  2. TRIMETHOPRIM-SULFAMETHOXAZOLE [Concomitant]
     Active Substance: SULFAMETHOXAZOLE\TRIMETHOPRIM
  3. INSULIN [Concomitant]
     Active Substance: INSULIN NOS
  4. CYCLOPHOSPHAMIDE. [Concomitant]
     Active Substance: CYCLOPHOSPHAMIDE
  5. LANSOPRAZOLE WORLD (LANSOPRAZOLE) UNKNOWN [Suspect]
     Active Substance: LANSOPRAZOLE
     Indication: EPIGASTRIC DISCOMFORT
  6. VORICONAZOLE. [Suspect]
     Active Substance: VORICONAZOLE
     Indication: ASPERGILLUS INFECTION
  7. SIMVASTATIN WORLD (SIMVASTATIN) UNKNOWN [Suspect]
     Active Substance: SIMVASTATIN
     Indication: HYPERLIPIDAEMIA

REACTIONS (5)
  - Hyperlipidaemia [None]
  - Hepatitis cholestatic [None]
  - Duodenogastric reflux [None]
  - Epigastric discomfort [None]
  - Drug interaction [None]
